FAERS Safety Report 24851483 (Version 1)
Quarter: 2025Q1

REPORT INFORMATION
  Report Type: Spontaneous
  Country: CO (occurrence: CO)
  Receive Date: 20250116
  Receipt Date: 20250116
  Transmission Date: 20250409
  Serious: Yes (Death, Life-Threatening, Hospitalization, Other)
  Sender: SANDOZ
  Company Number: CO-002147023-NVSC2024CO188423

PATIENT
  Sex: Female
  Weight: 80 kg

DRUGS (9)
  1. FULVESTRANT [Suspect]
     Active Substance: FULVESTRANT
     Indication: Product used for unknown indication
     Route: 065
  2. KISQALI [Suspect]
     Active Substance: RIBOCICLIB
     Indication: Hormone receptor positive HER2 negative breast cancer
     Dosage: 600 MG, QD
     Route: 048
     Dates: start: 20240726
  3. ACETAMINOPHEN [Concomitant]
     Active Substance: ACETAMINOPHEN
     Indication: Product used for unknown indication
     Route: 065
  4. METAMIZOLE SODIUM [Concomitant]
     Active Substance: METAMIZOLE SODIUM
     Dosage: 1 G, EVERY 8 HOURS (AMPOULE)
     Route: 040
  5. METAMIZOLE SODIUM [Concomitant]
     Active Substance: METAMIZOLE SODIUM
     Indication: Product used for unknown indication
     Route: 040
  6. FENTANYL CITRATE [Concomitant]
     Active Substance: FENTANYL CITRATE
     Indication: Product used for unknown indication
     Route: 065
  7. LIDOCAINE [Concomitant]
     Active Substance: LIDOCAINE
     Indication: Product used for unknown indication
     Route: 065
  8. CYCLOPHOSPHAMIDE\DOXORUBICIN\PREDNISONE\RITUXIMAB\VINCRISTINE [Concomitant]
     Active Substance: CYCLOPHOSPHAMIDE\DOXORUBICIN\PREDNISONE\RITUXIMAB\VINCRISTINE
     Indication: B-cell lymphoma
     Route: 065
  9. LACTATED RINGERS SOLUTION [Concomitant]
     Active Substance: CALCIUM CHLORIDE\POTASSIUM CHLORIDE\SODIUM CHLORIDE\SODIUM LACTATE
     Indication: Product used for unknown indication
     Route: 065

REACTIONS (71)
  - Death [Fatal]
  - Dyspnoea exertional [Unknown]
  - Breast enlargement [Unknown]
  - Mass [Unknown]
  - Erythema [Unknown]
  - Skin disorder [Unknown]
  - Nipple disorder [Unknown]
  - Breast ulceration [Unknown]
  - Purulent discharge [Unknown]
  - Spinal disorder [Unknown]
  - Musculoskeletal discomfort [Unknown]
  - Contusion [Unknown]
  - Spinal cord contusion [Unknown]
  - Pleural effusion [Unknown]
  - Lumbar vertebral fracture [Unknown]
  - Traumatic spinal cord compression [Unknown]
  - Traumatic arthropathy [Unknown]
  - Somnolence [Unknown]
  - Haematocrit abnormal [Unknown]
  - Haemoglobin abnormal [Unknown]
  - Blood potassium abnormal [Unknown]
  - Fall [Unknown]
  - Lung opacity [Unknown]
  - Cardiac disorder [Unknown]
  - Hilar lymphadenopathy [Unknown]
  - Atelectasis [Unknown]
  - Neutrophilia [Unknown]
  - Oxygen saturation abnormal [Unknown]
  - Insomnia [Unknown]
  - Feeling abnormal [Unknown]
  - Body fat disorder [Unknown]
  - Skin hypertrophy [Unknown]
  - Oedema peripheral [Unknown]
  - Body mass index decreased [Unknown]
  - White blood cell disorder [Unknown]
  - Muscle atrophy [Unknown]
  - Mucosal discolouration [Unknown]
  - Breast induration [Unknown]
  - Hemiparesis [Unknown]
  - Hypoventilation [Unknown]
  - Orthopnoea [Unknown]
  - Dyspnoea paroxysmal nocturnal [Unknown]
  - Hypertension [Unknown]
  - Oral disorder [Unknown]
  - Induration [Unknown]
  - Breast discharge [Unknown]
  - Pulmonary mass [Unknown]
  - Pleural thickening [Unknown]
  - Bloody discharge [Unknown]
  - General physical health deterioration [Unknown]
  - Neutrophil count abnormal [Unknown]
  - Blood creatinine abnormal [Unknown]
  - Prothrombin time abnormal [Unknown]
  - Activated partial thromboplastin time abnormal [Unknown]
  - White blood cell count abnormal [Unknown]
  - Fatigue [Unknown]
  - Productive cough [Unknown]
  - Use of accessory respiratory muscles [Unknown]
  - Chest pain [Unknown]
  - Hypokinesia [Unknown]
  - Cough [Unknown]
  - Gait disturbance [Unknown]
  - Asthenia [Unknown]
  - Arthralgia [Recovering/Resolving]
  - Pain [Unknown]
  - Myalgia [Unknown]
  - Inflammation [Unknown]
  - Decreased appetite [Unknown]
  - Back pain [Unknown]
  - Metastases to lung [Unknown]
  - Memory impairment [Unknown]

NARRATIVE: CASE EVENT DATE: 20240101
